FAERS Safety Report 10587894 (Version 2)
Quarter: 2014Q4

REPORT INFORMATION
  Report Type: Spontaneous
  Country: DE (occurrence: DE)
  Receive Date: 20141117
  Receipt Date: 20141204
  Transmission Date: 20150529
  Serious: Yes (Hospitalization, Other)
  Sender: FDA-Public Use
  Company Number: DE-PFIZER INC-2014314683

PATIENT
  Age: 63 Year
  Sex: Female

DRUGS (16)
  1. RAMIPRIL. [Suspect]
     Active Substance: RAMIPRIL
     Dosage: 2.5 MG, DAILY
     Route: 048
     Dates: end: 20131005
  2. SEROQUEL XR [Interacting]
     Active Substance: QUETIAPINE FUMARATE
     Dosage: 400 MG, DAILY
     Route: 048
     Dates: start: 20130911, end: 20130929
  3. TEGRETAL [Interacting]
     Active Substance: CARBAMAZEPINE
     Dosage: 600 MG, DAILY
     Route: 048
     Dates: end: 20130827
  4. TEGRETAL [Interacting]
     Active Substance: CARBAMAZEPINE
     Dosage: 400 MG, DAILY
     Route: 048
     Dates: start: 20130903, end: 20130907
  5. TEGRETAL [Interacting]
     Active Substance: CARBAMAZEPINE
     Dosage: 200 MG, DAILY
     Route: 048
     Dates: start: 20130915, end: 20130929
  6. CIPRALEX [Interacting]
     Active Substance: ESCITALOPRAM OXALATE
     Dosage: 10 MG, DAILY
     Route: 048
     Dates: start: 20130912, end: 20131005
  7. SEROQUEL XR [Interacting]
     Active Substance: QUETIAPINE FUMARATE
     Dosage: 300 MG, DAILY
     Route: 048
     Dates: start: 20130907, end: 20130910
  8. HYDROCHLOROTHIAZID [Interacting]
     Active Substance: HYDROCHLOROTHIAZIDE
     Dosage: 5.75 MG, DAILY
     Route: 048
     Dates: end: 20131005
  9. TEGRETAL [Interacting]
     Active Substance: CARBAMAZEPINE
     Dosage: 300 MG, DAILY
     Route: 048
     Dates: start: 20130908, end: 20130914
  10. SEROQUEL XR [Interacting]
     Active Substance: QUETIAPINE FUMARATE
     Dosage: 200 MG, DAILY
     Route: 048
     Dates: end: 20130906
  11. SEROQUEL XR [Interacting]
     Active Substance: QUETIAPINE FUMARATE
     Dosage: 500 MG, DAILY
     Route: 048
     Dates: start: 20130930, end: 20131005
  12. TEGRETAL [Interacting]
     Active Substance: CARBAMAZEPINE
     Dosage: 500 MG, DAILY
     Route: 048
     Dates: start: 20130828, end: 20130902
  13. TEGRETAL [Interacting]
     Active Substance: CARBAMAZEPINE
     Dosage: 100 MG, DAILY
     Route: 048
     Dates: start: 20130930, end: 20131004
  14. SIMVASTATIN. [Concomitant]
     Active Substance: SIMVASTATIN
     Dosage: UNK
  15. SOLIFENACIN SUCCINATE [Concomitant]
     Active Substance: SOLIFENACIN SUCCINATE
     Dosage: UNK
  16. METOPROLOL [Concomitant]
     Active Substance: METOPROLOL
     Dosage: UNK

REACTIONS (4)
  - Hyponatraemia [Recovered/Resolved]
  - Drug interaction [Recovered/Resolved]
  - Hypotension [Unknown]
  - Blood potassium decreased [Unknown]

NARRATIVE: CASE EVENT DATE: 20131005
